FAERS Safety Report 6249711-6 (Version None)
Quarter: 2009Q2

REPORT INFORMATION
  Report Type: 
  Country: None (occurrence: None)
  Receive Date: 20090629
  Receipt Date: 20090402
  Transmission Date: 20091009
  Serious: No
  Sender: FDA-Public Use
  Company Number: US-BAYER-200911551BCC

PATIENT
  Age: 47 Year
  Sex: Female

DRUGS (2)
  1. ALEVE [Suspect]
     Indication: DYSMENORRHOEA
     Dosage: TOTAL DAILY DOSE: 880 MG  UNIT DOSE: 220 MG
     Route: 048
     Dates: start: 20090402
  2. ALEVE SINUS AND HEADACHE [Suspect]
     Indication: SINUS CONGESTION
     Dosage: TOTAL DAILY DOSE: 220 MG  UNIT DOSE: 220 MG
     Route: 048
     Dates: start: 20090402

REACTIONS (1)
  - NO ADVERSE EVENT [None]
